FAERS Safety Report 6109763-0 (Version None)
Quarter: 2009Q1

REPORT INFORMATION
  Report Type: 
  Country: None (occurrence: None)
  Receive Date: 20090310
  Receipt Date: 20080416
  Transmission Date: 20090719
  Serious: No
  Sender: FDA-Public Use
  Company Number: A0723122A

PATIENT
  Age: 83 Year
  Sex: Male

DRUGS (1)
  1. NICORETTE (MINT) [Suspect]
     Dates: start: 20080313, end: 20080414

REACTIONS (4)
  - ABDOMINAL PAIN UPPER [None]
  - DYSPNOEA [None]
  - HICCUPS [None]
  - INTENTIONAL DRUG MISUSE [None]
